FAERS Safety Report 9127426 (Version 1)
Quarter: 2013Q1

REPORT INFORMATION
  Report Type: Spontaneous
  Country: US (occurrence: US)
  Receive Date: 20130228
  Receipt Date: 20130228
  Transmission Date: 20140127
  Serious: No
  Sender: FDA-Public Use
  Company Number: US-GLAXOSMITHKLINE-A0974802A

PATIENT
  Age: 55 Year
  Sex: Female

DRUGS (10)
  1. LAMICTAL [Suspect]
     Indication: BIPOLAR DISORDER
     Dosage: 25MG PER DAY
     Route: 048
     Dates: start: 201107
  2. LEVOTHYROXINE [Concomitant]
  3. PREMPRO [Concomitant]
  4. LIPITOR [Concomitant]
  5. MULTI VITAMIN + MINERALS [Concomitant]
  6. MAGNESIUM [Concomitant]
  7. FISH OIL [Concomitant]
  8. GARLIC [Concomitant]
  9. ASPIRIN [Concomitant]
  10. IBUPROFEN [Concomitant]

REACTIONS (2)
  - Photopsia [Unknown]
  - Chills [Unknown]
